FAERS Safety Report 6822677-3 (Version None)
Quarter: 2010Q3

REPORT INFORMATION
  Report Type: 
  Country: None (occurrence: None)
  Receive Date: 20100708
  Receipt Date: 20100628
  Transmission Date: 20110219
  Serious: Yes (Hospitalization)
  Sender: FDA-Public Use
  Company Number: FR-PFIZER INC-2010080009

PATIENT
  Age: 64 Year
  Sex: Female

DRUGS (3)
  1. CLINDAMYCIN HCL [Suspect]
     Indication: SEPSIS
     Dosage: UNK
     Route: 042
     Dates: start: 20100330, end: 20100413
  2. CLINDAMYCIN HCL [Suspect]
     Indication: INFECTION
  3. ORBENIN CAP [Suspect]
     Indication: STAPHYLOCOCCAL INFECTION
     Dosage: UNK
     Route: 042
     Dates: start: 20100326, end: 20100413

REACTIONS (2)
  - DERMATITIS EXFOLIATIVE [None]
  - PYREXIA [None]
